FAERS Safety Report 19595346 (Version 5)
Quarter: 2021Q4

REPORT INFORMATION
  Report Type: Spontaneous
  Country: CA (occurrence: CA)
  Receive Date: 20210723
  Receipt Date: 20211111
  Transmission Date: 20220303
  Serious: Yes (Other)
  Sender: FDA-Public Use
  Company Number: CA-CELLTRION INC.-2021CA006344

PATIENT

DRUGS (4)
  1. INFLECTRA [Suspect]
     Active Substance: INFLIXIMAB-DYYB
     Indication: Psoriatic arthropathy
     Dosage: 400 MG Q 0, 2 6 WEEKS, THEN Q 8 WEEKS
     Route: 042
     Dates: start: 20200225
  2. INFLECTRA [Suspect]
     Active Substance: INFLIXIMAB-DYYB
     Dosage: 400 MG Q 0, 2 6 WEEKS, THEN Q 8 WEEKS
     Route: 042
     Dates: start: 20210427
  3. INFLECTRA [Suspect]
     Active Substance: INFLIXIMAB-DYYB
     Dosage: 400 MG Q 0, 2 6 WEEKS, THEN Q 8 WEEKS
     Route: 042
     Dates: start: 20210623
  4. INFLECTRA [Suspect]
     Active Substance: INFLIXIMAB-DYYB
     Dosage: 400 MG Q 0, 2 6 WEEKS, THEN Q 8 WEEKS
     Route: 042
     Dates: start: 20210830

REACTIONS (11)
  - Blindness unilateral [Recovered/Resolved]
  - Pruritus [Unknown]
  - Pruritus [Unknown]
  - Flushing [Unknown]
  - Urticaria [Unknown]
  - Peripheral swelling [Unknown]
  - Asthenia [Unknown]
  - Back pain [Unknown]
  - Fatigue [Unknown]
  - Pain [Unknown]
  - Oropharyngeal pain [Unknown]

NARRATIVE: CASE EVENT DATE: 20210427
